FAERS Safety Report 4353335-5 (Version None)
Quarter: 2004Q2

REPORT INFORMATION
  Report Type: 
  Country: None (occurrence: None)
  Receive Date: 20040429
  Receipt Date: 20040421
  Transmission Date: 20050107
  Serious: Yes (Death)
  Sender: FDA-Public Use
  Company Number: US073589

PATIENT
  Age: 77 Year
  Sex: Male

DRUGS (1)
  1. EPOGEN [Suspect]
     Indication: MYELODYSPLASTIC SYNDROME
     Dosage: 60000 IU, 1 IN 1 WEEKS

REACTIONS (2)
  - HYPERTENSION [None]
  - INFLUENZA LIKE ILLNESS [None]
